FAERS Safety Report 7393537-7 (Version None)
Quarter: 2011Q2

REPORT INFORMATION
  Report Type: 
  Country: None (occurrence: None)
  Receive Date: 20110405
  Receipt Date: 20101006
  Transmission Date: 20111010
  Serious: Yes (Hospitalization, Other)
  Sender: FDA-Public Use
  Company Number: US-BAYER-201013987NA

PATIENT
  Sex: Female
  Weight: 91.61 kg

DRUGS (12)
  1. UNCODEABLE ^UNCLASSIFIABLE^ [Concomitant]
  2. TRICOR [Concomitant]
     Dosage: UNK
     Dates: start: 20080621
  3. OCELLA [Suspect]
     Indication: CONTRACEPTION
     Dosage: UNK
     Dates: start: 20080101, end: 20080101
  4. LEVAQUIN [Concomitant]
     Dosage: UNK
     Dates: start: 20080101, end: 20100101
  5. CLARITHROMYCIN [Concomitant]
  6. YASMIN [Suspect]
     Indication: CONTRACEPTION
     Route: 048
     Dates: start: 20030101, end: 20100101
  7. SYNTHROID [Concomitant]
     Dosage: 100 ?G, QD
     Dates: start: 20030101
  8. FLUCONAZOLE [Concomitant]
     Dosage: UNK
  9. ASTELIN [Concomitant]
     Dosage: 2 PUFF(S), BID
  10. AZITHROMYCIN [Concomitant]
     Dosage: 250 MG, UNK
  11. PREVACID [Concomitant]
     Indication: GASTROOESOPHAGEAL REFLUX DISEASE
     Dosage: 30 MG, UNK
     Dates: start: 20080609
  12. CLOTRIMAZOLE W/BETAMETHASONE DIPROPIONAT [Concomitant]
     Dosage: UNK UNK, TID

REACTIONS (2)
  - GASTROOESOPHAGEAL REFLUX DISEASE [None]
  - CHOLECYSTECTOMY [None]
